FAERS Safety Report 10044479 (Version 1)
Quarter: 2014Q1

REPORT INFORMATION
  Report Type: Spontaneous
  Country: US (occurrence: None)
  Receive Date: 20140326
  Receipt Date: 20140326
  Transmission Date: 20141002
  Serious: Yes (Other)
  Sender: FDA-Public Use
  Company Number: 001692356A

PATIENT
  Age: 15 Year
  Sex: Male

DRUGS (5)
  1. PROACTIV SOLUTION RENEWING CLEANSER [Suspect]
     Indication: ACNE
     Dosage: ONCE DAILY DERMAL
     Dates: start: 20130921, end: 20130922
  2. PROACTIV SOLUTION REPAIRING TREATMENT [Suspect]
     Indication: ACNE
     Dosage: ONCE DAILY DERMAL
     Dates: start: 20130921, end: 20130922
  3. PROACTIV SOLUTION DARK SPOT CORRECTOR [Suspect]
     Indication: THERAPEUTIC SKIN CARE TOPICAL
     Dosage: ONCE DAILY DERMAL
     Dates: start: 20130921, end: 20130922
  4. PROACTIV SOLUTION ADVANCED BLEMISH TREATMENT [Suspect]
     Indication: ACNE
     Dates: start: 20130921, end: 20130922
  5. PROACTIV SOLUTION DEEP CLEANSING WASH [Suspect]
     Dosage: ONCE DAILY DERMAL
     Dates: start: 20130921, end: 20130922

REACTIONS (3)
  - Urticaria [None]
  - Dyspnoea [None]
  - Cough [None]
